FAERS Safety Report 24592232 (Version 1)
Quarter: 2024Q4

REPORT INFORMATION
  Report Type: Spontaneous
  Country: FI (occurrence: FI)
  Receive Date: 20241108
  Receipt Date: 20241108
  Transmission Date: 20250115
  Serious: Yes (Life-Threatening)
  Sender: EXELIXIS
  Company Number: FI-IPSEN Group, Research and Development-2024-22357

PATIENT
  Age: 70 Year
  Sex: Male

DRUGS (1)
  1. CABOMETYX [Suspect]
     Active Substance: CABOZANTINIB S-MALATE
     Indication: Neoplasm malignant
     Dosage: 40 MG, QD(1 TABLET PER DAY)
     Route: 048
     Dates: start: 20240822, end: 20240910

REACTIONS (8)
  - Sepsis [Not Recovered/Not Resolved]
  - Abscess [Not Recovered/Not Resolved]
  - Fluid retention [Not Recovered/Not Resolved]
  - Lung disorder [Not Recovered/Not Resolved]
  - Performance status decreased [Not Recovered/Not Resolved]
  - Pancreatitis [Not Recovered/Not Resolved]
  - Hepatic function abnormal [Not Recovered/Not Resolved]
  - Dyspnoea [Not Recovered/Not Resolved]

NARRATIVE: CASE EVENT DATE: 20240910
